FAERS Safety Report 9370728 (Version 3)
Quarter: 2013Q3

REPORT INFORMATION
  Report Type: Spontaneous
  Country: FR (occurrence: FR)
  Receive Date: 20130626
  Receipt Date: 20130724
  Transmission Date: 20140515
  Serious: Yes (Death, Hospitalization)
  Sender: FDA-Public Use
  Company Number: FR-B.I. PHARMACEUTICALS,INC./RIDGEFIELD-2013-FF-01741FF

PATIENT
  Age: 59 Year
  Sex: Male

DRUGS (5)
  1. PRADAXA [Suspect]
     Indication: ATRIAL FIBRILLATION
     Dosage: 300 MG
     Route: 048
  2. CORDARONE [Concomitant]
     Route: 048
  3. IMODIUM [Concomitant]
     Route: 048
  4. KERLONE [Concomitant]
     Route: 048
  5. TARDYFERON [Concomitant]
     Route: 048

REACTIONS (3)
  - Cerebral haemorrhage [Fatal]
  - Ischaemic stroke [Fatal]
  - Reperfusion injury [Fatal]
